FAERS Safety Report 5307863-6 (Version None)
Quarter: 2007Q2

REPORT INFORMATION
  Report Type: 
  Country: None (occurrence: None)
  Receive Date: 20070420
  Receipt Date: 20070406
  Transmission Date: 20071010
  Serious: Yes (Hospitalization)
  Sender: FDA-Public Use
  Company Number: 2007000626

PATIENT
  Age: 48 Year
  Sex: Male
  Weight: 44.3 kg

DRUGS (8)
  1. ERLOTINIB (TABLET) [Suspect]
     Indication: ANAPLASTIC ASTROCYTOMA
     Dosage: 500 MG QD, ORAL
     Route: 048
     Dates: start: 20070309
  2. BEVACIZUMAB (INJECTION FOR INFUSION) [Suspect]
     Indication: ANAPLASTIC ASTROCYTOMA
     Dosage: 10 MG/KG Q3W, INTRAVENOUS
     Route: 042
     Dates: start: 20070309
  3. BEVACIZUMAB (INJECTION FOR INFUSION) [Suspect]
  4. PHENYTOIN [Concomitant]
  5. DEXAMETHASONE TAB [Concomitant]
  6. PANTOPRAZOLE SODIUM [Concomitant]
  7. ESCITALOPRAM OXALATE [Concomitant]
  8. LEVETIRACETAM [Concomitant]

REACTIONS (1)
  - PULMONARY EMBOLISM [None]
